FAERS Safety Report 21269265 (Version 1)
Quarter: 2022Q3

REPORT INFORMATION
  Report Type: Spontaneous
  Country: US (occurrence: None)
  Receive Date: 20220829
  Receipt Date: 20220829
  Transmission Date: 20221027
  Serious: No
  Sender: FDA-Public Use
  Company Number: None

PATIENT
  Age: 6 Year
  Sex: Female

DRUGS (1)
  1. DUPIXENT [Suspect]
     Active Substance: DUPILUMAB
     Indication: Dermatitis atopic
     Dosage: 300 MG EVERY MONTH SC
     Route: 058
     Dates: start: 202206

REACTIONS (3)
  - Drug delivery system malfunction [None]
  - Device leakage [None]
  - Product dose omission issue [None]

NARRATIVE: CASE EVENT DATE: 20220828
